FAERS Safety Report 9320899 (Version 2)
Quarter: 2013Q2

REPORT INFORMATION
  Report Type: Report from Study
  Country: US (occurrence: US)
  Receive Date: 20130531
  Receipt Date: 20130606
  Transmission Date: 20140414
  Serious: Yes (Hospitalization)
  Sender: FDA-Public Use
  Company Number: PHEH2013US011771

PATIENT
  Sex: Male

DRUGS (1)
  1. MYFORTIC [Suspect]
     Indication: HEPATIC CANCER
     Dosage: 360 MG, BID
     Route: 048
     Dates: start: 20120626

REACTIONS (1)
  - Transient ischaemic attack [Unknown]
